FAERS Safety Report 25730687 (Version 1)
Quarter: 2025Q3

REPORT INFORMATION
  Report Type: Spontaneous
  Country: CA (occurrence: None)
  Receive Date: 20250825
  Receipt Date: 20250825
  Transmission Date: 20251021
  Serious: Yes (Other)
  Sender: FDA-CTU
  Company Number: None

PATIENT
  Age: 26 Year
  Sex: Female
  Weight: 90.72 kg

DRUGS (1)
  1. YAZ [Suspect]
     Active Substance: DROSPIRENONE\ETHINYL ESTRADIOL

REACTIONS (6)
  - Impaired quality of life [None]
  - Increased appetite [None]
  - Depression [None]
  - Weight increased [None]
  - Infertility [None]
  - Product prescribing issue [None]

NARRATIVE: CASE EVENT DATE: 20101022
